FAERS Safety Report 14590856 (Version 1)
Quarter: 2018Q1

REPORT INFORMATION
  Report Type: Report from Study
  Country: JP (occurrence: JP)
  Receive Date: 20180302
  Receipt Date: 20180302
  Transmission Date: 20180509
  Serious: Yes (Death, Other)
  Sender: FDA-Public Use
  Company Number: JP-MYLANLABS-2018M1014469

PATIENT
  Age: 75 Year

DRUGS (1)
  1. TACROLIMUS CAPSULE? 0.5MG ?PFIZER? [Suspect]
     Active Substance: TACROLIMUS
     Indication: RHEUMATOID ARTHRITIS
     Route: 065

REACTIONS (2)
  - Stress cardiomyopathy [Fatal]
  - Cardiac failure [Fatal]
